FAERS Safety Report 8174086-5 (Version None)
Quarter: 2012Q1

REPORT INFORMATION
  Report Type: 
  Country: None (occurrence: None)
  Receive Date: 20120229
  Receipt Date: 20120223
  Transmission Date: 20120608
  Serious: Yes (Hospitalization)
  Sender: FDA-Public Use
  Company Number: JP-ROCHE-757065

PATIENT
  Sex: Female
  Weight: 45 kg

DRUGS (11)
  1. COPEGUS [Suspect]
     Route: 048
  2. LANSOPRAZOLE [Concomitant]
     Dosage: DOSAGE IS UNCERTAIN.
     Route: 048
     Dates: start: 20080101, end: 20110608
  3. LEVOTHYROXINE SODIUM [Concomitant]
     Dosage: DOSAGE IS UNCERTAIN. PERORAL AGENT.
     Route: 048
     Dates: start: 20080101, end: 20100924
  4. PEGINTERFERON ALFA-2A [Suspect]
     Indication: HEPATITIS C
     Route: 058
     Dates: start: 20100701, end: 20110210
  5. COPEGUS [Suspect]
     Indication: HEPATITIS C
     Route: 048
     Dates: start: 20100701, end: 20100817
  6. LIVALO [Concomitant]
     Dosage: DOSAGE IS UNCERTAIN. PERORAL AGENT.
     Route: 048
     Dates: start: 20100701, end: 20110608
  7. MUCOSTA [Concomitant]
     Dosage: DOSAGE IS UNCERTAIN. PERORAL AGENT.
     Route: 048
     Dates: start: 20100701, end: 20100924
  8. PEGINTERFERON ALFA-2A [Suspect]
     Route: 058
     Dates: start: 20110325, end: 20110601
  9. LOXONIN [Concomitant]
     Dosage: DOSAGE IS UNCERTAIN. PERORAL AGENT. SINGLE USE.
     Route: 048
  10. OLOPATADINE HCL [Concomitant]
     Dosage: DOSAGE IS UNCERTAIN. PERORAL AGENT.
     Route: 048
     Dates: start: 20100701, end: 20100924
  11. COPEGUS [Suspect]
     Route: 048
     Dates: start: 20101222, end: 20110608

REACTIONS (2)
  - FRACTURE [None]
  - ANAEMIA [None]
